FAERS Safety Report 15323536 (Version 3)
Quarter: 2018Q3

REPORT INFORMATION
  Report Type: Spontaneous
  Country: AR (occurrence: AR)
  Receive Date: 20180827
  Receipt Date: 20180924
  Transmission Date: 20181010
  Serious: Yes (Death, Hospitalization, Other)
  Sender: FDA-Public Use
  Company Number: AR-BIOMARINAP-AR-2018-119592

PATIENT
  Age: 18 Month
  Sex: Female

DRUGS (1)
  1. ALDURAZYME [Suspect]
     Active Substance: LARONIDASE
     Indication: MUCOPOLYSACCHARIDOSIS I
     Dosage: UNK, QW
     Route: 041
     Dates: start: 201801

REACTIONS (3)
  - Critical illness [Not Recovered/Not Resolved]
  - Complications of bone marrow transplant [Unknown]
  - Death [Fatal]

NARRATIVE: CASE EVENT DATE: 20180731
